FAERS Safety Report 7322950-9 (Version None)
Quarter: 2011Q1

REPORT INFORMATION
  Report Type: 
  Country: None (occurrence: None)
  Receive Date: 20110301
  Receipt Date: 20110217
  Transmission Date: 20110831
  Serious: Yes (Disabling)
  Sender: FDA-Public Use
  Company Number: PHHY2011FR13134

PATIENT
  Age: 86 Year
  Sex: Female
  Weight: 73 kg

DRUGS (1)
  1. RIVASTIGMINE [Suspect]
     Indication: DEMENTIA ALZHEIMER'S TYPE
     Dosage: 4.6 MG, QD
     Route: 062
     Dates: start: 20100701, end: 20100706

REACTIONS (2)
  - AGGRESSION [None]
  - AGITATION [None]
